FAERS Safety Report 10873370 (Version 1)
Quarter: 2015Q1

REPORT INFORMATION
  Report Type: Spontaneous
  Country: US (occurrence: US)
  Receive Date: 20150227
  Receipt Date: 20150227
  Transmission Date: 20150721
  Serious: No
  Sender: FDA-Public Use
  Company Number: US-BEH-2013038376

PATIENT
  Age: 2 Month
  Sex: Female

DRUGS (8)
  1. CYTOGAM [Suspect]
     Active Substance: HUMAN CYTOMEGALOVIRUS IMMUNE GLOBULIN
     Dates: start: 20130930
  2. CYTOGAM [Suspect]
     Active Substance: HUMAN CYTOMEGALOVIRUS IMMUNE GLOBULIN
     Dates: start: 20131004
  3. CYTOGAM [Suspect]
     Active Substance: HUMAN CYTOMEGALOVIRUS IMMUNE GLOBULIN
     Dates: start: 20130926
  4. CYTOGAM [Suspect]
     Active Substance: HUMAN CYTOMEGALOVIRUS IMMUNE GLOBULIN
     Indication: COMBINED IMMUNODEFICIENCY
     Dates: start: 20131103
  5. GAMUNEX [Concomitant]
     Active Substance: HUMAN IMMUNOGLOBULIN G
  6. CYTOGAM [Suspect]
     Active Substance: HUMAN CYTOMEGALOVIRUS IMMUNE GLOBULIN
     Dates: start: 20130928
  7. CYTOGAM [Suspect]
     Active Substance: HUMAN CYTOMEGALOVIRUS IMMUNE GLOBULIN
     Dates: start: 20131103
  8. CYTOGAM [Suspect]
     Active Substance: HUMAN CYTOMEGALOVIRUS IMMUNE GLOBULIN
     Dates: start: 20131002

REACTIONS (1)
  - Anti-erythrocyte antibody [Unknown]

NARRATIVE: CASE EVENT DATE: 20131005
